FAERS Safety Report 8230680-4 (Version None)
Quarter: 2012Q1

REPORT INFORMATION
  Report Type: 
  Country: None (occurrence: None)
  Receive Date: 20120323
  Receipt Date: 20120314
  Transmission Date: 20120608
  Serious: Yes (Hospitalization)
  Sender: FDA-Public Use
  Company Number: JP-GENZYME-THYM-1003108

PATIENT
  Sex: Female
  Weight: 66 kg

DRUGS (15)
  1. LANSOPRAZOLE [Concomitant]
     Indication: GASTROOESOPHAGEAL REFLUX DISEASE
     Dosage: 30 MG, QD
     Route: 065
     Dates: start: 20120111
  2. INSULIN DETEMIR [Concomitant]
     Indication: DIABETES MELLITUS
     Dosage: UNK
     Route: 065
  3. ACYCLOVIR [Concomitant]
     Indication: PROPHYLAXIS
     Dosage: UNK
     Route: 065
     Dates: start: 20120111
  4. INSULIN ASPART [Concomitant]
     Indication: DIABETES MELLITUS
     Dosage: UNK
     Route: 065
  5. THYMOGLOBULIN [Suspect]
     Indication: APLASTIC ANAEMIA
     Dosage: 160 MG, QD
     Route: 042
     Dates: start: 20120111, end: 20120111
  6. CORTICOSTEROID NOS [Concomitant]
     Indication: PRODUCT USED FOR UNKNOWN INDICATION
     Dosage: UNK
     Route: 065
  7. ITRACONAZOLE [Concomitant]
     Indication: PROPHYLAXIS
     Dosage: 20 ML, QD
     Route: 065
     Dates: start: 20120111
  8. PLATELETS [Concomitant]
     Indication: PRODUCT USED FOR UNKNOWN INDICATION
     Dosage: UNK
     Route: 065
     Dates: start: 20120106
  9. LOXOPROFEN SODIUM [Concomitant]
     Indication: PREMEDICATION
     Dosage: 60 MG, QD
     Route: 065
     Dates: start: 20120111, end: 20120111
  10. CLEMASTINE FUMARATE [Concomitant]
     Indication: PREMEDICATION
     Dosage: 1 MG, QD
     Route: 065
     Dates: start: 20120111, end: 20120111
  11. CYCLOSPORINE [Suspect]
     Indication: APLASTIC ANAEMIA
     Dosage: 200 MG, BID
     Route: 065
     Dates: start: 20120111
  12. SULTAMICILLIN TOSILATE [Concomitant]
     Indication: PROPHYLAXIS
     Dosage: 375 MG, TID
     Route: 065
     Dates: start: 20120111
  13. METFORMIN HCL [Concomitant]
     Indication: DIABETES MELLITUS
     Dosage: 500 MG, TID
     Route: 065
  14. SULFAMETHOPRIM [Concomitant]
     Indication: PROPHYLAXIS
     Dosage: UNK
     Route: 065
     Dates: start: 20120111
  15. RED BLOOD CELLS, CONCENTRATED [Concomitant]
     Indication: PRODUCT USED FOR UNKNOWN INDICATION
     Dosage: UNK
     Route: 065
     Dates: start: 20111228

REACTIONS (5)
  - OROPHARYNGEAL DISCOMFORT [None]
  - WEIGHT INCREASED [None]
  - PANCYTOPENIA [None]
  - OEDEMA [None]
  - PYREXIA [None]
